FAERS Safety Report 9726536 (Version 3)
Quarter: 2015Q3

REPORT INFORMATION
  Report Type: Report from Study
  Country: NL (occurrence: NL)
  Receive Date: 20131203
  Receipt Date: 20150914
  Transmission Date: 20151125
  Serious: Yes (Hospitalization)
  Sender: FDA-Public Use
  Company Number: NL-GILEAD-2013-0088521

PATIENT
  Age: 58 Year
  Sex: Female

DRUGS (1)
  1. AZTREONAM LYSINE [Suspect]
     Active Substance: AZTREONAM LYSINE
     Indication: PRODUCT USED FOR UNKNOWN INDICATION
     Dosage: 1 DF, TID
     Dates: start: 20130404, end: 2015

REACTIONS (2)
  - Treatment noncompliance [Unknown]
  - Infection [Unknown]

NARRATIVE: CASE EVENT DATE: 2015
